FAERS Safety Report 6222527-2 (Version None)
Quarter: 2009Q2

REPORT INFORMATION
  Report Type: 
  Country: None (occurrence: None)
  Receive Date: 20090611
  Receipt Date: 20090603
  Transmission Date: 20091009
  Serious: Yes (Hospitalization)
  Sender: FDA-Public Use
  Company Number: DE-PFIZER INC-2009221834

PATIENT
  Age: 72 Year

DRUGS (10)
  1. AMLODIPINE BESYLATE [Suspect]
     Indication: HYPERTENSION
     Dosage: 5 MG, 1X/DAY
     Route: 048
     Dates: start: 20080501
  2. FENTANYL CITRATE [Suspect]
     Indication: PAIN
     Dosage: 50 UG, EVERY 3 DAYS
     Route: 062
     Dates: start: 20070101
  3. ALENDRONIC ACID [Concomitant]
     Indication: OSTEOPOROSIS
     Dosage: 70 MG, WEEKLY
     Route: 048
     Dates: start: 20080901
  4. CALCIMAGON-D3 [Concomitant]
     Indication: OSTEOPOROSIS
     Dosage: 1 DF, 1X/DAY
     Route: 048
     Dates: start: 20080901
  5. DIOVAN HCT [Concomitant]
     Indication: HYPERTENSION
     Dosage: 1 DF (12.5 MG HCT/320 MG VALSARTAN), 1X/DAY
     Route: 048
  6. GODAMED [Concomitant]
     Indication: CAROTID ARTERY STENOSIS
     Dosage: 100 MG, 1X/DAY
     Route: 048
  7. MICTONORM [Concomitant]
     Indication: MICTURITION URGENCY
     Dosage: 30 MG, 1X/DAY
     Route: 048
  8. PANTOZOL [Concomitant]
     Indication: GASTRITIS PROPHYLAXIS
     Dosage: 40 MG, 1X/DAY
     Route: 048
  9. PRESOMEN [Concomitant]
     Indication: OSTEOPOROSIS
     Dosage: 0.6 MG, 1X/DAY
     Route: 048
  10. VIANI [Concomitant]
     Indication: ASTHMA
     Dosage: 1 DF (50 UG FLUTICASONE PROPIONATE/250 UG SALMETEROL XINAFOATE), 2X/DAY

REACTIONS (1)
  - FAECALOMA [None]
